FAERS Safety Report 7284086-5 (Version None)
Quarter: 2011Q1

REPORT INFORMATION
  Report Type: 
  Country: None (occurrence: None)
  Receive Date: 20110209
  Receipt Date: 20100308
  Transmission Date: 20110831
  Serious: No
  Sender: FDA-Public Use
  Company Number: US-PFIZER INC-2010030554

PATIENT

DRUGS (2)
  1. GEODON [Suspect]
     Dosage: 240 MG, UNK
  2. VALPROATE SODIUM [Suspect]
     Dosage: 1000 MG, UNK

REACTIONS (1)
  - TREMOR [None]
